FAERS Safety Report 5075420-5 (Version None)
Quarter: 2006Q3

REPORT INFORMATION
  Report Type: 
  Country: None (occurrence: None)
  Receive Date: 20060809
  Receipt Date: 20060512
  Transmission Date: 20061208
  Serious: Yes (Hospitalization)
  Sender: FDA-Public Use
  Company Number: FR-SANOFI-SYNTHELABO-F01200601213

PATIENT
  Sex: Female

DRUGS (6)
  1. METHYLPREDNISOLONE [Concomitant]
     Dosage: UNK
     Route: 065
  2. ONDANSETRON HCL [Concomitant]
     Dosage: UNK
     Route: 065
     Dates: start: 20060330
  3. BONIVA [Suspect]
     Indication: METASTASES TO BONE
     Route: 042
     Dates: start: 20060223, end: 20060316
  4. FLUOROURACIL [Suspect]
     Dosage: Q 15 DAYS
     Route: 041
     Dates: start: 20060330, end: 20060330
  5. OXALIPLATIN [Suspect]
     Indication: BREAST CANCER METASTATIC
     Dosage: Q 15 DAYS
     Route: 041
     Dates: start: 20060330, end: 20060330
  6. LEVOTHYROXINE SODIUM [Concomitant]
     Dosage: UNK
     Route: 065

REACTIONS (6)
  - ASTHENIA [None]
  - DEHYDRATION [None]
  - DIARRHOEA [None]
  - GENERAL PHYSICAL HEALTH DETERIORATION [None]
  - NAUSEA [None]
  - VOMITING [None]
